FAERS Safety Report 9652268 (Version 2)
Quarter: 2013Q4

REPORT INFORMATION
  Report Type: Report from Study
  Country: TR (occurrence: TR)
  Receive Date: 20131029
  Receipt Date: 20131203
  Transmission Date: 20140711
  Serious: Yes (Hospitalization)
  Sender: FDA-Public Use
  Company Number: TR-ABBVIE-13P-161-1162355-00

PATIENT
  Age: 71 Year
  Sex: Male
  Weight: 75 kg

DRUGS (4)
  1. HUMIRA [Suspect]
     Indication: ANKYLOSING SPONDYLITIS
     Route: 058
     Dates: start: 20110228
  2. SALAZOPYRIN [Concomitant]
     Indication: ANKYLOSING SPONDYLITIS
     Route: 048
  3. FOLBIOL [Concomitant]
     Indication: ANKYLOSING SPONDYLITIS
     Dosage: 5 MILLIGRAMS PER WEEK
     Route: 048
  4. METOTREXATE [Concomitant]
     Indication: RHEUMATOID ARTHRITIS
     Dosage: 15 MILLIGRAMS PER WEEK
     Route: 048

REACTIONS (2)
  - Cervical vertebral fracture [Recovering/Resolving]
  - Fall [Unknown]
